FAERS Safety Report 26055287 (Version 1)
Quarter: 2025Q4

REPORT INFORMATION
  Report Type: Spontaneous
  Country: CH (occurrence: CH)
  Receive Date: 20251117
  Receipt Date: 20251117
  Transmission Date: 20260117
  Serious: Yes (Hospitalization, Other)
  Sender: MERCK SHARP & DOHME LLC
  Company Number: CH-009507513-2349605

PATIENT
  Age: 84 Year
  Sex: Male

DRUGS (1)
  1. KEYTRUDA [Suspect]
     Active Substance: PEMBROLIZUMAB
     Indication: Squamous cell carcinoma of the tongue
     Dates: start: 2025

REACTIONS (4)
  - Pneumonia [Unknown]
  - Tracheostomy [Unknown]
  - Pneumonitis aspiration [Unknown]
  - Cardiac failure [Unknown]

NARRATIVE: CASE EVENT DATE: 20250901
